FAERS Safety Report 16398818 (Version 1)
Quarter: 2019Q2

REPORT INFORMATION
  Report Type: Spontaneous
  Country: US (occurrence: US)
  Receive Date: 20190429
  Receipt Date: 20190429
  Transmission Date: 20190711
  Serious: No
  Sender: FDA-Public Use
  Company Number: None

PATIENT
  Age: 52 Year
  Sex: Female
  Weight: 78.02 kg

DRUGS (3)
  1. OXYCODONE HCL 15 MG TABLET (ROXICODONE COMMON BRAND) [Suspect]
     Active Substance: OXYCODONE HYDROCHLORIDE
     Indication: PAIN MANAGEMENT
     Dosage: ?          QUANTITY:15 MG MILLIGRAM(S);?
     Route: 048
     Dates: start: 20190213, end: 201903
  2. OXYCODONE HYDROCHLORIDE. [Suspect]
     Active Substance: OXYCODONE HYDROCHLORIDE
     Indication: INTERVERTEBRAL DISC DEGENERATION
  3. STRAWBERRY ENSURE [Concomitant]

REACTIONS (6)
  - Weight decreased [None]
  - Product substitution issue [None]
  - Malaise [None]
  - Abnormal behaviour [None]
  - Vomiting [None]
  - Diarrhoea [None]
